FAERS Safety Report 6402631-6 (Version None)
Quarter: 2009Q4

REPORT INFORMATION
  Report Type: 
  Country: None (occurrence: None)
  Receive Date: 20091009
  Receipt Date: 20090930
  Transmission Date: 20100525
  Serious: Yes (Disabling)
  Sender: FDA-Public Use
  Company Number: ADR34742009

PATIENT
  Age: 42 Year
  Sex: Male

DRUGS (3)
  1. CIPROFLOXACIN [Suspect]
     Indication: EPIDIDYMITIS
     Dosage: 500 MG ORAL
     Route: 048
     Dates: start: 20061018, end: 20061025
  2. ATORVASTATIN [Concomitant]
  3. SIMVASTATIN [Concomitant]

REACTIONS (2)
  - BACK PAIN [None]
  - DYSURIA [None]
